FAERS Safety Report 5707565-8 (Version None)
Quarter: 2008Q2

REPORT INFORMATION
  Report Type: 
  Country: None (occurrence: None)
  Receive Date: 20080416
  Receipt Date: 20080408
  Transmission Date: 20081010
  Serious: Yes (Other)
  Sender: FDA-Public Use
  Company Number: IE-MERCK-0804GBR00048

PATIENT
  Age: 11 Year
  Sex: Male

DRUGS (3)
  1. SINGULAIR [Suspect]
     Route: 048
     Dates: end: 20080401
  2. FLUTICASONE PROPIONATE AND SALMETEROL XINAFOATE [Concomitant]
     Route: 065
  3. ALBUTEROL [Concomitant]
     Route: 065

REACTIONS (1)
  - SUICIDE ATTEMPT [None]
